FAERS Safety Report 7152389-0 (Version None)
Quarter: 2010Q4

REPORT INFORMATION
  Report Type: 
  Country: None (occurrence: None)
  Receive Date: 20101209
  Receipt Date: 20101209
  Transmission Date: 20110411
  Serious: Yes (Disabling)
  Sender: FDA-Public Use
  Company Number: None

PATIENT
  Sex: Male
  Weight: 68.0396 kg

DRUGS (1)
  1. PROPECIA [Suspect]
     Indication: ANDROGENETIC ALOPECIA
     Dosage: 1MG DAILY 3.5 YRS ORAL
     Route: 048
     Dates: start: 20060501, end: 20101001

REACTIONS (5)
  - ANHEDONIA [None]
  - ANXIETY [None]
  - COGNITIVE DISORDER [None]
  - LIBIDO DECREASED [None]
  - MEMORY IMPAIRMENT [None]
